FAERS Safety Report 25712484 (Version 1)
Quarter: 2025Q3

REPORT INFORMATION
  Report Type: Spontaneous
  Country: EU (occurrence: EU)
  Receive Date: 20250821
  Receipt Date: 20250821
  Transmission Date: 20251020
  Serious: Yes (Hospitalization)
  Sender: BAUSCH AND LOMB
  Company Number: EU-BAUSCH-BH-2025-016442

PATIENT
  Age: 32 Year
  Sex: Male

DRUGS (6)
  1. IMIQUIMOD [Suspect]
     Active Substance: IMIQUIMOD
     Indication: Buschke-Lowenstein^s tumour
     Route: 061
  2. EVEROLIMUS [Suspect]
     Active Substance: EVEROLIMUS
     Indication: Immunosuppressant drug therapy
     Dosage: BID, UNKNOWN
  3. TACROLIMUS [Suspect]
     Active Substance: TACROLIMUS
     Indication: Immunosuppressant drug therapy
     Dosage: UNKNOWN
  4. PREDNISOLONE [Suspect]
     Active Substance: PREDNISOLONE
     Indication: Immunosuppressant drug therapy
     Dosage: UNKNOWN
  5. MITOMYCIN [Suspect]
     Active Substance: MITOMYCIN
     Indication: Buschke-Lowenstein^s tumour
     Route: 040
  6. CAPECITABINE [Suspect]
     Active Substance: CAPECITABINE
     Indication: Buschke-Lowenstein^s tumour
     Dosage: UNKNOWN

REACTIONS (8)
  - Buschke-Lowenstein^s tumour [Unknown]
  - Chronic kidney disease [Unknown]
  - Nephropathy toxic [Unknown]
  - Activities of daily living decreased [Unknown]
  - Gait disturbance [Unknown]
  - Insomnia [Unknown]
  - Drug ineffective for unapproved indication [Unknown]
  - Off label use [Unknown]
